FAERS Safety Report 15022543 (Version 1)
Quarter: 2018Q2

REPORT INFORMATION
  Report Type: Spontaneous
  Country: BR (occurrence: BR)
  Receive Date: 20180618
  Receipt Date: 20180618
  Transmission Date: 20180711
  Serious: Yes (Hospitalization, Other)
  Sender: FDA-Public Use
  Company Number: BR-GLAXOSMITHKLINE-BR2018GSK104278

PATIENT
  Sex: Female
  Weight: 6 kg

DRUGS (3)
  1. FLIXOTIDE (CFC-FREE) [Suspect]
     Active Substance: FLUTICASONE PROPIONATE
     Indication: BRONCHIOLITIS
     Dosage: UNK UNK, BID
     Route: 055
  2. AEROLIN [Suspect]
     Active Substance: ALBUTEROL
     Indication: BRONCHIOLITIS
     Dosage: UNK, Z
     Route: 055
     Dates: start: 201805
  3. CLENIL [Suspect]
     Active Substance: BECLOMETHASONE DIPROPIONATE
     Indication: BRONCHIOLITIS
     Dosage: UNK UNK, QD
     Route: 055
     Dates: start: 201806, end: 201806

REACTIONS (3)
  - Hospitalisation [Unknown]
  - Product use issue [Unknown]
  - Drug prescribing error [Recovered/Resolved]
